FAERS Safety Report 16183912 (Version 2)
Quarter: 2019Q2

REPORT INFORMATION
  Report Type: Report from Study
  Country: NL (occurrence: NL)
  Receive Date: 20190411
  Receipt Date: 20190430
  Transmission Date: 20190711
  Serious: Yes (Death, Life-Threatening)
  Sender: FDA-Public Use
  Company Number: NL-ROCHE-2301412

PATIENT
  Age: 73 Year
  Sex: Male
  Weight: 74.5 kg

DRUGS (4)
  1. VENETOCLAX. [Suspect]
     Active Substance: VENETOCLAX
     Indication: CHRONIC LYMPHOCYTIC LEUKAEMIA
     Dosage: MOST RECENT DOSE OF VENETOCLAX ON 25/DEC/2018?CYCLE 1: 20 MG (2 TABL. AT 10 MG), D22-28, Q28D; CYCLE
     Route: 048
     Dates: start: 20180220, end: 20181225
  2. OBINUTUZUMAB. [Suspect]
     Active Substance: OBINUTUZUMAB
     Indication: CHRONIC LYMPHOCYTIC LEUKAEMIA
     Dosage: MOST RECENT DOSE OF OBINUTUZUMAB ON 19/JUN/2018?CYCLE 1: 100 MG, D1; 900 MG, D1(2); 1000 MG, D8+15,
     Route: 042
     Dates: start: 20180130
  3. IBRUTINIB [Suspect]
     Active Substance: IBRUTINIB
     Indication: CHRONIC LYMPHOCYTIC LEUKAEMIA
     Dosage: MOST RECENT DOSE OF IBRUTINIB ON 25/DEC/2018?CYCLES 1-12: 420 MG, D1-28, Q28D; CYCLES 13-36: 420 MG,
     Route: 048
     Dates: start: 20180130, end: 20181225
  4. MORFINE [Concomitant]
     Active Substance: MORPHINE
     Route: 048
     Dates: start: 20190406

REACTIONS (1)
  - Acute myeloid leukaemia [Fatal]

NARRATIVE: CASE EVENT DATE: 20190321
